FAERS Safety Report 21859049 (Version 1)
Quarter: 2023Q1

REPORT INFORMATION
  Report Type: Spontaneous
  Country: PL (occurrence: PL)
  Receive Date: 20230113
  Receipt Date: 20230113
  Transmission Date: 20230418
  Serious: Yes (Other)
  Sender: FDA-Public Use
  Company Number: None

PATIENT
  Age: 31 Year
  Sex: Male

DRUGS (2)
  1. ARIPIPRAZOLE [Suspect]
     Active Substance: ARIPIPRAZOLE
     Indication: Schizophrenia
     Dosage: 15 MG DAILY
     Dates: start: 2016
  2. AMANTADINE [Suspect]
     Active Substance: AMANTADINE
     Indication: Libido decreased
     Dosage: IN THE EVENING

REACTIONS (4)
  - Libido decreased [Recovered/Resolved]
  - Male sexual dysfunction [Recovering/Resolving]
  - Disturbance in sexual arousal [Recovering/Resolving]
  - Erectile dysfunction [Recovering/Resolving]
